FAERS Safety Report 12550407 (Version 2)
Quarter: 2016Q3

REPORT INFORMATION
  Report Type: Spontaneous
  Country: US (occurrence: US)
  Receive Date: 20160712
  Receipt Date: 20160907
  Transmission Date: 20161109
  Serious: Yes (Hospitalization)
  Sender: FDA-Public Use
  Company Number: US-SA-2016SA127785

PATIENT
  Age: 44 Year
  Sex: Female

DRUGS (18)
  1. AMPYRA [Concomitant]
     Active Substance: DALFAMPRIDINE
  2. CLONAZEPAM. [Concomitant]
     Active Substance: CLONAZEPAM
     Dosage: 1 TABLET BID PRN
  3. MEDROL [Concomitant]
     Active Substance: METHYLPREDNISOLONE
     Dosage: 1 DOSE AS DIRECTED
  4. VALTREX [Concomitant]
     Active Substance: VALACYCLOVIR HYDROCHLORIDE
     Dosage: CAPLET
  5. PEPCID [Concomitant]
     Active Substance: FAMOTIDINE
  6. VITAMIN D [Concomitant]
     Active Substance: CHOLECALCIFEROL
     Dosage: DOSE:2000 UNIT(S)
  7. FOSAMAX [Concomitant]
     Active Substance: ALENDRONATE SODIUM
  8. NAPROXEN. [Concomitant]
     Active Substance: NAPROXEN
  9. MELOXICAM. [Concomitant]
     Active Substance: MELOXICAM
     Dosage: 1 TWICE A DAY P.C. WHEN NECESSARY
  10. BACLOFEN. [Concomitant]
     Active Substance: BACLOFEN
  11. NORTRIPTYLINE HYDROCHLORIDE. [Concomitant]
     Active Substance: NORTRIPTYLINE HYDROCHLORIDE
     Dosage: 3 TABLETS QHS
  12. ADDERALL [Concomitant]
     Active Substance: AMPHETAMINE ASPARTATE\AMPHETAMINE SULFATE\DEXTROAMPHETAMINE SACCHARATE\DEXTROAMPHETAMINE SULFATE
  13. LEMTRADA [Suspect]
     Active Substance: ALEMTUZUMAB
     Indication: MULTIPLE SCLEROSIS
     Route: 041
     Dates: start: 20160620, end: 20160630
  14. SUMATRIPTAN SUCCINATE. [Concomitant]
     Active Substance: SUMATRIPTAN SUCCINATE
     Indication: HEADACHE
     Dosage: TAKE AT TIME OF HEADACHE CAN REPEAT IN 2 HOURS NOT MORE THAN 2/24 HOURS
  15. MECLIZINE [Concomitant]
     Active Substance: MECLIZINE HYDROCHLORIDE
  16. CLARITIN [Concomitant]
     Active Substance: LORATADINE
  17. ADDERALL [Concomitant]
     Active Substance: AMPHETAMINE ASPARTATE\AMPHETAMINE SULFATE\DEXTROAMPHETAMINE SACCHARATE\DEXTROAMPHETAMINE SULFATE
  18. TYSABRI [Concomitant]
     Active Substance: NATALIZUMAB

REACTIONS (2)
  - Disorientation [Recovered/Resolved]
  - Confusional state [Recovered/Resolved]

NARRATIVE: CASE EVENT DATE: 20160623
